FAERS Safety Report 9913547 (Version 5)
Quarter: 2014Q3

REPORT INFORMATION
  Report Type: Spontaneous
  Country: US (occurrence: US)
  Receive Date: 20140220
  Receipt Date: 20140715
  Transmission Date: 20150326
  Serious: Yes (Hospitalization, Disabling, Other)
  Sender: FDA-Public Use
  Company Number: US-009507513-1203USA02664

PATIENT
  Sex: Female
  Weight: 68.27 kg

DRUGS (2)
  1. FOSAMAX [Suspect]
     Active Substance: ALENDRONATE SODIUM
     Dosage: 70 MG, QW
     Route: 048
  2. FOSAMAX [Suspect]
     Active Substance: ALENDRONATE SODIUM
     Dosage: 10 MG, QD
     Route: 048
     Dates: start: 1997

REACTIONS (45)
  - Cardiac murmur [Unknown]
  - Cough [Unknown]
  - Spinal fracture [Unknown]
  - Intramedullary rod insertion [Unknown]
  - Pericardial effusion [Unknown]
  - Medical device implantation [Unknown]
  - Osteopenia [Unknown]
  - Back pain [Unknown]
  - Lipoma [Unknown]
  - Arthralgia [Unknown]
  - Arthralgia [Unknown]
  - Femur fracture [Unknown]
  - Intestinal adenocarcinoma [Unknown]
  - Colectomy [Unknown]
  - Spinal fusion surgery [Unknown]
  - Atrophy [Unknown]
  - Arteriosclerosis [Unknown]
  - Spondylolisthesis [Unknown]
  - Cervical cord compression [Unknown]
  - Spondylolisthesis [Unknown]
  - Adverse event [Not Recovered/Not Resolved]
  - Ataxia [Unknown]
  - Aortic disorder [Unknown]
  - Spinal claudication [Unknown]
  - Medical device removal [Unknown]
  - Cerebral atrophy [Unknown]
  - Spinal operation [Unknown]
  - Chondrocalcinosis [Unknown]
  - Lumbar vertebral fracture [Unknown]
  - Primary hypothyroidism [Unknown]
  - Cerebral ischaemia [Unknown]
  - Neuropathy peripheral [Unknown]
  - Hypertension [Unknown]
  - Micturition urgency [Unknown]
  - Abdominal distension [Unknown]
  - Spinal laminectomy [Unknown]
  - Polymyalgia rheumatica [Unknown]
  - Spinal osteoarthritis [Unknown]
  - Cardiomegaly [Unknown]
  - Gastric polyps [Unknown]
  - Lacunar infarction [Unknown]
  - Intervertebral disc degeneration [Unknown]
  - Spinal column stenosis [Unknown]
  - Aortic calcification [Unknown]
  - Myelopathy [Unknown]

NARRATIVE: CASE EVENT DATE: 19970117
